FAERS Safety Report 19591361 (Version 1)
Quarter: 2021Q3

REPORT INFORMATION
  Report Type: Spontaneous
  Country: RO (occurrence: RO)
  Receive Date: 20210721
  Receipt Date: 20210721
  Transmission Date: 20211014
  Serious: Yes (Hospitalization, Other)
  Sender: FDA-Public Use
  Company Number: RO-FERRINGPH-2021FE04577

PATIENT
  Age: 60 Year
  Sex: Male

DRUGS (1)
  1. DESMOPRESSIN [Suspect]
     Active Substance: DESMOPRESSIN
     Indication: HAEMORRHAGE PROPHYLAXIS
     Dosage: 60 UG, ONCE/SINGLE, 2HRS BEFORE PROCEDURE
     Route: 048

REACTIONS (5)
  - Contraindicated product administered [Unknown]
  - Hyponatraemia [Recovered/Resolved]
  - Brain oedema [Unknown]
  - Product use in unapproved indication [Unknown]
  - Off label use [Unknown]
